FAERS Safety Report 8837465 (Version 2)
Quarter: 2012Q4

REPORT INFORMATION
  Report Type: 
  Country: US (occurrence: US)
  Receive Date: 20121012
  Receipt Date: 20121106
  Transmission Date: 20130627
  Serious: No
  Sender: FDA-Public Use
  Company Number: US-PFIZER INC-2012251520

PATIENT
  Age: 60 Year
  Sex: Female

DRUGS (1)
  1. NORVASC [Suspect]
     Dosage: 5 mg, 1x/day
     Route: 048
     Dates: start: 20110727, end: 20120418

REACTIONS (1)
  - Headache [Unknown]
